FAERS Safety Report 5239146-7 (Version None)
Quarter: 2007Q1

REPORT INFORMATION
  Report Type: 
  Country: None (occurrence: None)
  Receive Date: 20070212
  Receipt Date: 20070125
  Transmission Date: 20070707
  Serious: Yes (Hospitalization)
  Sender: FDA-Public Use
  Company Number: 2007JP000372

PATIENT
  Age: 1 Year
  Sex: Female

DRUGS (2)
  1. PROGRAF [Suspect]
     Dosage: SEE IMAGE
     Route: 048
     Dates: start: 20070116, end: 20070117
  2. PROGRAF [Suspect]
     Dosage: SEE IMAGE
     Route: 048
     Dates: start: 20070118, end: 20070122

REACTIONS (2)
  - CONVULSION [None]
  - DYSKINESIA [None]
